FAERS Safety Report 8926468 (Version 1)
Quarter: 2012Q4

REPORT INFORMATION
  Report Type: 
  Country: US (occurrence: US)
  Receive Date: 20121127
  Receipt Date: 20121127
  Transmission Date: 20130627
  Serious: Yes (Other)
  Sender: FDA-Public Use
  Company Number: US-ELI_LILLY_AND_COMPANY-US201211006159

PATIENT
  Sex: Male

DRUGS (4)
  1. EFFIENT [Suspect]
     Indication: STENT PLACEMENT
     Dosage: 10 mg, UNK
     Dates: start: 201108, end: 20121105
  2. VASOTEC                            /00574902/ [Concomitant]
     Dosage: 2.5 mg, qd
  3. METOPROLOL [Concomitant]
     Dosage: 25 mg, qd
  4. SIMVASTATIN [Concomitant]
     Dosage: 40 mg, qd

REACTIONS (11)
  - Throat tightness [Unknown]
  - Oropharyngeal pain [Unknown]
  - Urticaria [Unknown]
  - Pain [Unknown]
  - Myalgia [Unknown]
  - Musculoskeletal pain [Unknown]
  - Arthralgia [Unknown]
  - General physical health deterioration [Unknown]
  - Fatigue [Unknown]
  - Rash generalised [Unknown]
  - Rash [Unknown]
